FAERS Safety Report 10553694 (Version 16)
Quarter: 2015Q4

REPORT INFORMATION
  Report Type: Report from Study
  Country: CA (occurrence: CA)
  Receive Date: 20141030
  Receipt Date: 20151214
  Transmission Date: 20160304
  Serious: Yes (Death, Hospitalization, Other)
  Sender: FDA-Public Use
  Company Number: PHHY2013CA150300

PATIENT
  Age: 67 Year
  Sex: Female

DRUGS (3)
  1. SANDOSTATIN LAR DEPOT [Suspect]
     Active Substance: OCTREOTIDE ACETATE
     Indication: NEUROENDOCRINE TUMOUR
     Dosage: 20 MG, QMO (EVERY 4 WEEKS)
     Route: 030
     Dates: start: 20131021
  2. SANDOSTATIN LAR DEPOT [Suspect]
     Active Substance: OCTREOTIDE ACETATE
     Dosage: 30 MG, QMO (EVERY 4 WEEKS)
     Route: 030
  3. SANDOSTATIN LAR DEPOT [Suspect]
     Active Substance: OCTREOTIDE ACETATE
     Dosage: 40 MG, TIW (EVERY 3 WEEKS)
     Route: 030
     Dates: start: 20150427, end: 20151126

REACTIONS (31)
  - Decreased appetite [Unknown]
  - Death [Fatal]
  - Urinary tract infection [Unknown]
  - Anaemia [Unknown]
  - Myalgia [Unknown]
  - Malaise [Unknown]
  - Heart valve incompetence [Unknown]
  - Abdominal pain [Unknown]
  - Asthenia [Unknown]
  - General physical health deterioration [Unknown]
  - Renal impairment [Unknown]
  - Blood pressure increased [Unknown]
  - Joint swelling [Unknown]
  - Rash [Not Recovered/Not Resolved]
  - Hepatic neoplasm [Unknown]
  - Petechiae [Not Recovered/Not Resolved]
  - Renal failure [Unknown]
  - Pruritus [Not Recovered/Not Resolved]
  - Diarrhoea [Unknown]
  - Oedema peripheral [Unknown]
  - Peripheral swelling [Unknown]
  - Fluid retention [Unknown]
  - Oedema [Unknown]
  - Osteoarthritis [Unknown]
  - Product quality issue [Unknown]
  - Dyspnoea [Unknown]
  - Body temperature decreased [Unknown]
  - Back pain [Unknown]
  - Needle issue [Unknown]
  - Inappropriate schedule of drug administration [Unknown]
  - Fatigue [Unknown]

NARRATIVE: CASE EVENT DATE: 20131218
